FAERS Safety Report 7589107-8 (Version None)
Quarter: 2011Q3

REPORT INFORMATION
  Report Type: 
  Country: None (occurrence: None)
  Receive Date: 20110705
  Receipt Date: 20080720
  Transmission Date: 20111222
  Serious: Yes (Disabling, Other)
  Sender: FDA-Public Use
  Company Number: US-BAYER-200824851NA

PATIENT
  Sex: Male
  Weight: 103.18 kg

DRUGS (33)
  1. OMNISCAN [Suspect]
     Indication: IMAGING PROCEDURE
  2. RENAGEL [Concomitant]
  3. PREDNISONE [Concomitant]
  4. FK 506 [Concomitant]
  5. MAGNEVIST [Suspect]
     Indication: NUCLEAR MAGNETIC RESONANCE IMAGING
     Dosage: 40 ML, UNK
     Dates: start: 20040902, end: 20040902
  6. FERROUS SULFATE TAB [Concomitant]
  7. PLENDIL [Concomitant]
  8. NORVASC [Concomitant]
  9. DILAUDID [Concomitant]
  10. ACETYLSALICYLIC ACID SRT [Concomitant]
  11. CLONIDINE [Concomitant]
  12. LASIX [Concomitant]
  13. LOVENOX [Concomitant]
  14. GADOLINIUM IN UNSPECIFIED DRUG [Suspect]
     Indication: NUCLEAR MAGNETIC RESONANCE IMAGING
     Dosage: UNK
     Dates: start: 20040622, end: 20040622
  15. FENTANYL [Concomitant]
  16. MIDODRINE HYDROCHLORIDE [Concomitant]
  17. EPOGEN [Concomitant]
  18. CELLCEPT [Concomitant]
  19. METHADONE HCL [Concomitant]
  20. MAGNEVIST [Suspect]
     Indication: ANGIOGRAM
  21. OMNISCAN [Suspect]
     Indication: NUCLEAR MAGNETIC RESONANCE IMAGING
     Dates: start: 20050322, end: 20050322
  22. FELODIPINE [Concomitant]
  23. CELEBREX [Concomitant]
  24. GABAPENTIN [Suspect]
  25. MAGNEVIST [Suspect]
  26. OMNISCAN [Suspect]
     Indication: ANGIOGRAM
  27. COUMADIN [Concomitant]
  28. PLAVIX [Concomitant]
  29. PHOSLO [Concomitant]
  30. PERCOCET [Concomitant]
  31. PROTONIX [Concomitant]
  32. ATENOLOL [Concomitant]
  33. LYRICA [Concomitant]

REACTIONS (18)
  - INJURY [None]
  - ANXIETY [None]
  - MOBILITY DECREASED [None]
  - EXTREMITY CONTRACTURE [None]
  - DEPRESSION [None]
  - PRURITUS [None]
  - PAIN [None]
  - SCAR [None]
  - NEPHROGENIC SYSTEMIC FIBROSIS [None]
  - BLISTER [None]
  - SKIN HYPERTROPHY [None]
  - GENERAL PHYSICAL HEALTH DETERIORATION [None]
  - SKIN INDURATION [None]
  - SENSATION OF HEAVINESS [None]
  - EMOTIONAL DISTRESS [None]
  - FRUSTRATION [None]
  - JOINT RANGE OF MOTION DECREASED [None]
  - FIBROSIS [None]
